FAERS Safety Report 7466322-5 (Version None)
Quarter: 2011Q2

REPORT INFORMATION
  Report Type: 
  Country: None (occurrence: None)
  Receive Date: 20110509
  Receipt Date: 20100719
  Transmission Date: 20111010
  Serious: No
  Sender: FDA-Public Use
  Company Number: US-ALEXION-A201000849

PATIENT
  Sex: Male
  Weight: 89.252 kg

DRUGS (23)
  1. DILAUDID [Concomitant]
     Indication: PAIN
     Dosage: 4 MG, Q4-6H PRN
     Route: 048
     Dates: start: 20091116
  2. GLUCOSE [Concomitant]
     Dosage: 4 G, QD
     Route: 048
  3. ZOLPIDEM [Concomitant]
     Dosage: 10 MG, QD
     Route: 048
  4. CLARITIN                           /00917501/ [Concomitant]
     Dosage: 10 MG, QD
     Route: 048
  5. COZAAR [Concomitant]
     Dosage: 100 MG, QD
     Route: 048
  6. ALBUTEROL [Concomitant]
     Indication: DYSPNOEA
     Dosage: 90 UG (1-2 PUFFS) Q4H, PRN
  7. MECLIZINE                          /00072801/ [Concomitant]
     Dosage: 25 MG, QD, PRN
  8. SOLIRIS [Suspect]
     Indication: PAROXYSMAL NOCTURNAL HAEMOGLOBINURIA
     Dosage: 600 MG, QW X 4
     Route: 042
     Dates: start: 20090323
  9. AMBIEN [Concomitant]
     Indication: INSOMNIA
     Dosage: 10 MG, PRN
     Route: 048
  10. GABAPENTIN [Concomitant]
     Dosage: 300 MG, UNK
     Route: 048
  11. VICODIN [Concomitant]
     Indication: PAIN
     Dosage: 5/500 MG Q6H PRN
     Route: 048
     Dates: start: 20100408
  12. FERROUS SULFATE TAB [Concomitant]
     Dosage: 325 MG, BID (1 TAB, EMPTY STOMACH)
     Route: 048
  13. PAROXETINE HYDROCHLORIDE [Concomitant]
     Dosage: 20 MG, QD
     Route: 048
  14. FOLIC ACID [Concomitant]
     Dosage: 1 MG, QD
     Route: 048
  15. PIROXICAM [Concomitant]
     Dosage: 20 MG, QD
     Route: 048
  16. PREVACID [Concomitant]
     Dosage: 30 MG, QD
     Route: 048
  17. DOCUSATE SODIUM [Concomitant]
     Dosage: 100 MG, BID
     Route: 048
  18. FUROSEMIDE [Concomitant]
     Dosage: 40 MG, QD
     Route: 048
  19. TERAZOSIN HCL [Concomitant]
     Dosage: 5 MG, QD HS
     Route: 048
  20. IRON [Concomitant]
     Dosage: UNK
     Dates: start: 20100101
  21. SOLIRIS [Suspect]
     Dosage: 900 MG, Q2W
     Route: 042
     Dates: start: 20090420
  22. SIMVASTATIN [Concomitant]
     Dosage: 40 MG, QD (QHS)
     Route: 048
  23. COLACE [Concomitant]
     Dosage: UNK
     Dates: start: 20100101

REACTIONS (19)
  - HEADACHE [None]
  - FATIGUE [None]
  - OESOPHAGITIS [None]
  - MUSCULOSKELETAL CHEST PAIN [None]
  - ANXIETY [None]
  - RED BLOOD CELL COUNT DECREASED [None]
  - DYSPNOEA EXERTIONAL [None]
  - HAEMATURIA [None]
  - HYPERBILIRUBINAEMIA [None]
  - CONSTIPATION [None]
  - HERNIA [None]
  - NECK PAIN [None]
  - ARTHRALGIA [None]
  - TESTICULAR PAIN [None]
  - GASTRITIS [None]
  - HAEMOGLOBINURIA [None]
  - MEMORY IMPAIRMENT [None]
  - MYALGIA [None]
  - PAIN IN EXTREMITY [None]
